FAERS Safety Report 7215340-0 (Version None)
Quarter: 2011Q1

REPORT INFORMATION
  Report Type: 
  Country: None (occurrence: None)
  Receive Date: 20110107
  Receipt Date: 20110104
  Transmission Date: 20110831
  Serious: Yes (Death)
  Sender: FDA-Public Use
  Company Number: US-KINGPHARMUSA00001-K201100007

PATIENT
  Age: 36 Year
  Sex: Female

DRUGS (6)
  1. LEVOXYL [Suspect]
     Indication: COMPLETED SUICIDE
     Route: 048
  2. ALPRAZOLAM [Suspect]
     Indication: COMPLETED SUICIDE
     Route: 048
  3. PHENOBARBITAL [Suspect]
     Indication: COMPLETED SUICIDE
     Route: 048
  4. ANTICHOLINERGICS [Suspect]
     Indication: COMPLETED SUICIDE
     Route: 048
  5. MORPHINE [Suspect]
     Indication: COMPLETED SUICIDE
     Route: 048
  6. CLONAZEPAM [Suspect]
     Indication: COMPLETED SUICIDE
     Route: 048

REACTIONS (3)
  - CARDIO-RESPIRATORY ARREST [None]
  - COMPLETED SUICIDE [None]
  - INTENTIONAL DRUG MISUSE [None]
